FAERS Safety Report 9973571 (Version 1)
Quarter: 2014Q1

REPORT INFORMATION
  Report Type: Spontaneous
  Country: US (occurrence: None)
  Receive Date: 20140218
  Receipt Date: 20140218
  Transmission Date: 20141002
  Serious: Yes (Other)
  Sender: FDA-Public Use
  Company Number: OMPQ-PR-1311S-1283

PATIENT
  Age: 36 Year
  Sex: Female

DRUGS (2)
  1. OMNIPAQUE [Suspect]
     Indication: ABDOMINAL PAIN
     Dosage: SINGLE
     Dates: start: 20131103, end: 20131103
  2. OMNIPAQUE [Suspect]
     Indication: DIAGNOSTIC PROCEDURE
     Dosage: SINGLE
     Dates: start: 20131103, end: 20131103

REACTIONS (4)
  - Urticaria [None]
  - Dyspnoea [None]
  - Nausea [None]
  - Vomiting [None]
